FAERS Safety Report 16960111 (Version 1)
Quarter: 2019Q4

REPORT INFORMATION
  Report Type: Spontaneous
  Country: US (occurrence: US)
  Receive Date: 20191025
  Receipt Date: 20191025
  Transmission Date: 20200122
  Serious: Yes (Other)
  Sender: FDA-Public Use
  Company Number: US-TEVA-2019-US-1126781

PATIENT
  Sex: Female

DRUGS (4)
  1. ACTIQ [Suspect]
     Active Substance: FENTANYL CITRATE
     Indication: NERVOUS SYSTEM DISORDER
  2. ACTIQ [Suspect]
     Active Substance: FENTANYL CITRATE
     Indication: PAIN
  3. ACTIQ [Suspect]
     Active Substance: FENTANYL CITRATE
     Indication: COMPLEX REGIONAL PAIN SYNDROME
     Dosage: 4-5 TIMES A DAY, USUALLY 4 TIMES A DAY
     Dates: start: 2009
  4. FENTANYL TRANSDERMAL SYSTEM [Concomitant]
     Active Substance: FENTANYL
     Indication: PAIN
     Route: 065

REACTIONS (5)
  - Gingival disorder [Unknown]
  - Surgery [Unknown]
  - Dental caries [Unknown]
  - Product use in unapproved indication [Unknown]
  - Tooth disorder [Unknown]

NARRATIVE: CASE EVENT DATE: 2009
